FAERS Safety Report 19779035 (Version 2)
Quarter: 2021Q3

REPORT INFORMATION
  Report Type: Report from Study
  Country: US (occurrence: US)
  Receive Date: 20210902
  Receipt Date: 20210910
  Transmission Date: 20211014
  Serious: Yes (Other)
  Sender: FDA-Public Use
  Company Number: NVSC2021US195500

PATIENT
  Sex: Male

DRUGS (1)
  1. ENTRESTO [Suspect]
     Active Substance: SACUBITRIL\VALSARTAN
     Indication: PRODUCT USED FOR UNKNOWN INDICATION
     Dosage: 1 DF, BID(24/26)
     Route: 065

REACTIONS (6)
  - Fluid retention [Unknown]
  - Dyspnoea exertional [Unknown]
  - Cardiac failure congestive [Unknown]
  - Memory impairment [Unknown]
  - Depression [Unknown]
  - Stress [Unknown]
